FAERS Safety Report 4713709-7 (Version None)
Quarter: 2005Q3

REPORT INFORMATION
  Report Type: 
  Country: None (occurrence: None)
  Receive Date: 20050713
  Receipt Date: 20050624
  Transmission Date: 20060218
  Serious: Yes (Hospitalization)
  Sender: FDA-Public Use
  Company Number: USA0506101295

PATIENT
  Age: 80 Year
  Sex: Female
  Weight: 66 kg

DRUGS (2)
  1. HUMULIN-HUMAN NPH INSULIN (RDNA) (HUMAN INSULIN (RD [Suspect]
     Indication: BLOOD GLUCOSE ABNORMAL
     Dosage: 10 U/2 DAY
     Dates: start: 20050130
  2. LANTUS [Concomitant]

REACTIONS (4)
  - BLOOD GLUCOSE INCREASED [None]
  - FACIAL PALSY [None]
  - PHARMACEUTICAL PRODUCT COMPLAINT [None]
  - VISUAL DISTURBANCE [None]
